FAERS Safety Report 7542225-2 (Version None)
Quarter: 2011Q2

REPORT INFORMATION
  Report Type: 
  Country: None (occurrence: None)
  Receive Date: 20110613
  Receipt Date: 20110609
  Transmission Date: 20111010
  Serious: Yes (Other)
  Sender: FDA-Public Use
  Company Number: JP-PFIZER INC-2011125713

PATIENT
  Sex: Female

DRUGS (3)
  1. CARVEDILOL [Concomitant]
  2. DOXAZOSIN MESYLATE [Suspect]
     Dosage: 4 MG DAILY
     Route: 048
  3. NORVASC [Suspect]
     Dosage: UNK
     Route: 048

REACTIONS (1)
  - BILIARY NEOPLASM [None]
